FAERS Safety Report 25570361 (Version 3)
Quarter: 2025Q4

REPORT INFORMATION
  Report Type: Report from Study
  Country: CA (occurrence: CA)
  Receive Date: 20250717
  Receipt Date: 20251021
  Transmission Date: 20260117
  Serious: Yes (Hospitalization, Other)
  Sender: CELLTRION
  Company Number: CA-CELLTRION INC.-2025CA023169

PATIENT

DRUGS (3)
  1. INFLIXIMAB-DYYB [Suspect]
     Active Substance: INFLIXIMAB-DYYB
     Indication: Crohn^s disease
     Dosage: 300 MG EVERY 8 WEEKS
     Route: 042
     Dates: start: 20250609
  2. INFLIXIMAB-DYYB [Suspect]
     Active Substance: INFLIXIMAB-DYYB
     Dosage: MAINTENANCE - 300 MG - IV (INTRAVENOUS) EVERY 8 WEEKS
     Route: 042
     Dates: start: 20250609
  3. PREDNISONE [Concomitant]
     Active Substance: PREDNISONE
     Indication: Product used for unknown indication
     Route: 065

REACTIONS (8)
  - Small intestinal obstruction [Not Recovered/Not Resolved]
  - Bowel obstruction surgery [Unknown]
  - Crohn^s disease [Not Recovered/Not Resolved]
  - Impaired work ability [Not Recovered/Not Resolved]
  - Weight decreased [Unknown]
  - Dehydration [Unknown]
  - Drug ineffective [Not Recovered/Not Resolved]
  - Overdose [Unknown]

NARRATIVE: CASE EVENT DATE: 20250401
